FAERS Safety Report 11886316 (Version 1)
Quarter: 2016Q1

REPORT INFORMATION
  Report Type: Other
  Country: ME (occurrence: ME)
  Receive Date: 20160104
  Receipt Date: 20160104
  Transmission Date: 20160526
  Serious: Yes (Other)
  Sender: FDA-Public Use
  Company Number: ME-ENDO PHARMACEUTICALS INC-2015-005207

PATIENT
  Age: 49 Year
  Sex: Female

DRUGS (3)
  1. PREDNISOLONE ORAL SOLUTION [Suspect]
     Active Substance: PREDNISOLONE
     Indication: IMMUNOSUPPRESSANT DRUG THERAPY
     Route: 065
  2. MYCOPHENOLATE MOFETIL CAPSULES [Suspect]
     Active Substance: MYCOPHENOLATE MOFETIL
     Indication: IMMUNOSUPPRESSANT DRUG THERAPY
     Route: 065
  3. CYCLOSPORIN [Suspect]
     Active Substance: CYCLOSPORINE
     Indication: IMMUNOSUPPRESSANT DRUG THERAPY
     Route: 065

REACTIONS (2)
  - Transplant rejection [Recovered/Resolved]
  - Breast cancer [Not Recovered/Not Resolved]
